FAERS Safety Report 19331544 (Version 1)
Quarter: 2021Q2

REPORT INFORMATION
  Report Type: Spontaneous
  Country: FR (occurrence: FR)
  Receive Date: 20210528
  Receipt Date: 20210528
  Transmission Date: 20210717
  Serious: Yes (Hospitalization)
  Sender: FDA-Public Use
  Company Number: FR-PFIZER INC-2021572619

PATIENT
  Age: 4 Year
  Sex: Male
  Weight: 25 kg

DRUGS (5)
  1. OMEPRAZOLE ARROW [OMEPRAZOLE] [Suspect]
     Active Substance: OMEPRAZOLE
     Indication: T-CELL TYPE ACUTE LEUKAEMIA
     Dosage: 20 MG, 1X/DAY
     Route: 042
     Dates: start: 20210329, end: 20210405
  2. GLIVEC [Suspect]
     Active Substance: IMATINIB MESYLATE
     Indication: T-CELL TYPE ACUTE LEUKAEMIA
     Dosage: 3.5 DF, 1X/DAY
     Route: 048
     Dates: start: 20210307, end: 20210401
  3. SOLUPRED [PREDNISOLONE METASULFOBENZOATE SODIUM] [Suspect]
     Active Substance: PREDNISOLONE SODIUM METAZOATE
     Indication: T-CELL TYPE ACUTE LEUKAEMIA
     Dosage: 60 MG, 1X/DAY
     Route: 048
     Dates: start: 20210326, end: 20210406
  4. METHOTREXATE SODIUM. [Suspect]
     Active Substance: METHOTREXATE SODIUM
     Indication: T-CELL TYPE ACUTE LEUKAEMIA
     Dosage: 12 MG, CYCLIC
     Route: 037
     Dates: start: 20210310, end: 20210331
  5. VINCRISTINE SULFATE. [Suspect]
     Active Substance: VINCRISTINE SULFATE
     Indication: T-CELL TYPE ACUTE LEUKAEMIA
     Dosage: 1.4 MG, CYCLIC
     Route: 042
     Dates: start: 20210309, end: 20210330

REACTIONS (2)
  - Posterior reversible encephalopathy syndrome [Recovered/Resolved]
  - Hyponatraemia [Recovered/Resolved]

NARRATIVE: CASE EVENT DATE: 20210405
